FAERS Safety Report 7734927-X (Version None)
Quarter: 2011Q3

REPORT INFORMATION
  Report Type: 
  Country: None (occurrence: None)
  Receive Date: 20110907
  Receipt Date: 20110905
  Transmission Date: 20111222
  Serious: Yes (Death)
  Sender: FDA-Public Use
  Company Number: PHHY2011DE32082

PATIENT
  Sex: Female
  Weight: 78 kg

DRUGS (7)
  1. METFORMIN HCL [Concomitant]
     Route: 048
  2. SANDOSTATIN LAR [Suspect]
     Indication: ACROMEGALY
     Dosage: 10 MG, MONTHLY
     Route: 030
     Dates: start: 20090420, end: 20110322
  3. SERTRALINE HYDROCHLORIDE [Concomitant]
     Route: 048
  4. ASPIRIN [Concomitant]
     Route: 048
  5. INSULIN [Concomitant]
  6. ACTOS [Concomitant]
     Route: 048
  7. CAPTOPRIL [Concomitant]
     Route: 048

REACTIONS (1)
  - DEATH [None]
